FAERS Safety Report 15675516 (Version 1)
Quarter: 2018Q4

REPORT INFORMATION
  Report Type: Spontaneous
  Country: DE (occurrence: DE)
  Receive Date: 20181130
  Receipt Date: 20181130
  Transmission Date: 20190205
  Serious: Yes (Other)
  Sender: FDA-Public Use
  Company Number: DE-TEVA-2018-DE-978609

PATIENT
  Age: 8 Decade
  Sex: Female

DRUGS (7)
  1. BROMAZEPAM 6MG [Suspect]
     Active Substance: BROMAZEPAM
     Dosage: 12 MILLIGRAM DAILY; 0-0-2; INTAKE LONGER THAN 2 YEARS
     Route: 048
  2. MADOPAR [Suspect]
     Active Substance: BENSERAZIDE HYDROCHLORIDE\LEVODOPA
     Indication: PARKINSON^S DISEASE
     Dosage: SYMPTOMS IMPROVE DURING THERAPY
     Route: 048
     Dates: start: 201807
  3. PREGABALIN 75 MG [Suspect]
     Active Substance: PREGABALIN
     Indication: BACK PAIN
     Dosage: 75 MILLIGRAM DAILY; 1-0-0; INTAKE LONGER THAN 2 YEARS
     Route: 048
  4. L-THYROXIN (LEVOTHYROXINE) [Suspect]
     Active Substance: LEVOTHYROXINE
     Dosage: THYROID VALUES NORMAL
     Route: 048
  5. CLOZAPIN [Suspect]
     Active Substance: CLOZAPINE
     Dosage: 75 MILLIGRAM DAILY; INTAKE 12.5 MG IN THE MORNING, INTAKE 62.5 MG IN THE EVENING
     Route: 048
  6. DULOXETIN 60MG [Suspect]
     Active Substance: DULOXETINE
     Indication: DEPRESSION
     Dosage: 60 MILLIGRAM DAILY; 1-0-0; INTAKE LONGER THAN 2 YEARS
     Route: 048
  7. CORTISON [Suspect]
     Active Substance: CORTISONE ACETATE
     Indication: ADDISON^S DISEASE
     Route: 048

REACTIONS (4)
  - Aggression [Unknown]
  - Overdose [Unknown]
  - Somnolence [Unknown]
  - Drug dependence [Unknown]
